FAERS Safety Report 7951682-9 (Version None)
Quarter: 2011Q4

REPORT INFORMATION
  Report Type: 
  Country: None (occurrence: None)
  Receive Date: 20111201
  Receipt Date: 20111122
  Transmission Date: 20120403
  Serious: Yes (Other)
  Sender: FDA-Public Use
  Company Number: US-CELGENEUS-163-21880-11071398

PATIENT
  Sex: Female

DRUGS (19)
  1. CLINDAMYCIN [Concomitant]
     Dosage: 2 CAPSULE
     Route: 048
  2. NEXIUM [Concomitant]
     Dosage: 1 CAPSULE
     Route: 048
  3. PERCOCET [Concomitant]
     Dosage: 5 MG - 325 MG
     Route: 048
  4. REVLIMID [Suspect]
     Indication: MULTIPLE MYELOMA
     Dosage: 25 MILLIGRAM
     Route: 048
     Dates: start: 20101209
  5. COLACE [Concomitant]
     Dosage: 1 CAPSULE
     Route: 048
  6. ASPIRIN [Suspect]
     Dosage: 81 MILLIGRAM
     Route: 048
  7. CALCIUM 600 PLUS VITAMIN D3 [Concomitant]
     Dosage: 600 MG-200 UNIT
     Route: 048
  8. NYSTATIN-TRIAMCINOLONE [Concomitant]
     Dosage: .1 PERCENT
     Route: 061
  9. PROCHLORPERAZINE MALEATE [Concomitant]
     Dosage: 1 TABLET
     Route: 048
  10. PSYLLIUM SEED ORAL PACKET [Concomitant]
     Route: 048
  11. REVLIMID [Suspect]
     Dosage: 10 MILLIGRAM
     Route: 048
     Dates: start: 20110701
  12. SIMVASTATIN [Concomitant]
     Dosage: 1 TABLET
     Route: 048
  13. ZOLPIDEM [Concomitant]
     Dosage: 1 TABLET
     Route: 048
  14. REVLIMID [Suspect]
     Dosage: 10 MILLIGRAM
     Route: 048
     Dates: start: 20110501
  15. ZOMETA [Concomitant]
     Route: 041
  16. BUPROPION HCL [Concomitant]
     Dosage: 1 TABLET
     Route: 048
  17. MULTIVITAMIN [Concomitant]
     Dosage: 1 TABLET
     Route: 048
  18. CLARITIN [Concomitant]
     Dosage: 10 MILLIGRAM
     Route: 048
  19. FLONASE [Concomitant]
     Dosage: 2 SORAYS
     Route: 045

REACTIONS (4)
  - HAEMORRHAGE [None]
  - WHITE BLOOD CELL COUNT DECREASED [None]
  - CONTUSION [None]
  - PLATELET COUNT DECREASED [None]
